FAERS Safety Report 6825575-4 (Version None)
Quarter: 2010Q3

REPORT INFORMATION
  Report Type: 
  Country: None (occurrence: None)
  Receive Date: 20100708
  Receipt Date: 20070330
  Transmission Date: 20110219
  Serious: No
  Sender: FDA-Public Use
  Company Number: US-PFIZER INC-2007001770

PATIENT
  Sex: Female
  Weight: 56.7 kg

DRUGS (4)
  1. CHANTIX [Suspect]
     Route: 048
     Dates: start: 20061227, end: 20070102
  2. NEURONTIN [Concomitant]
     Indication: TARSAL TUNNEL SYNDROME
  3. ATIVAN [Concomitant]
     Indication: ANXIETY
  4. OXYBUTYNIN CHLORIDE [Concomitant]
     Indication: POLLAKIURIA
     Route: 062

REACTIONS (5)
  - FATIGUE [None]
  - PAIN [None]
  - PAIN IN EXTREMITY [None]
  - POLLAKIURIA [None]
  - SENSATION OF HEAVINESS [None]
